FAERS Safety Report 9050538 (Version 2)
Quarter: 2013Q2

REPORT INFORMATION
  Report Type: Spontaneous
  Country: US (occurrence: US)
  Receive Date: 20130205
  Receipt Date: 20130430
  Transmission Date: 20140414
  Serious: Yes (Other)
  Sender: FDA-Public Use
  Company Number: US-ABBOTT-13P-163-1045463-00

PATIENT
  Sex: Male
  Weight: 77.18 kg

DRUGS (17)
  1. ANDROGEL [Suspect]
     Indication: BLOOD TESTOSTERONE DECREASED
     Dosage: TAKING MEDICATION ON + OFF
  2. ANDROGEL [Suspect]
     Dosage: EVERY MORNING
     Route: 061
     Dates: start: 201205
  3. ANDROGEL [Suspect]
     Route: 061
     Dates: start: 201301, end: 201301
  4. EFFIENT [Concomitant]
     Indication: ARTERIOSCLEROSIS CORONARY ARTERY
     Dates: start: 201208
  5. AMLODIPINE/BENAZEPRIL [Concomitant]
     Indication: PRODUCT USED FOR UNKNOWN INDICATION
     Dates: start: 201205
  6. WARFARIN [Concomitant]
     Indication: PRODUCT USED FOR UNKNOWN INDICATION
  7. CITALOPRAM [Concomitant]
     Indication: DEPRESSION
  8. METFORMIN [Concomitant]
     Indication: TYPE 2 DIABETES MELLITUS
  9. LIPITOR [Concomitant]
     Indication: BLOOD CHOLESTEROL
  10. FLOMAX GENERIC [Concomitant]
     Indication: PROSTATIC DISORDER
  11. FOLBEE [Concomitant]
     Indication: PRODUCT USED FOR UNKNOWN INDICATION
  12. FISH OIL [Concomitant]
     Indication: PRODUCT USED FOR UNKNOWN INDICATION
  13. OMEGA 3 [Concomitant]
     Indication: PRODUCT USED FOR UNKNOWN INDICATION
  14. MULTIVITAMIN [Concomitant]
     Indication: PRODUCT USED FOR UNKNOWN INDICATION
     Route: 048
  15. ASPIRIN [Concomitant]
     Indication: PRODUCT USED FOR UNKNOWN INDICATION
     Route: 048
  16. B6 FOLIC ACID [Concomitant]
     Indication: PRODUCT USED FOR UNKNOWN INDICATION
  17. SALINE (SALT WATER SPRAY) [Concomitant]
     Indication: PRODUCT USED FOR UNKNOWN INDICATION

REACTIONS (11)
  - Arteriosclerosis coronary artery [Recovered/Resolved]
  - Drug ineffective [Not Recovered/Not Resolved]
  - Hypotonia [Not Recovered/Not Resolved]
  - Erectile dysfunction [Not Recovered/Not Resolved]
  - Expired drug administered [Not Recovered/Not Resolved]
  - Chest pain [Recovering/Resolving]
  - Gallbladder disorder [Recovering/Resolving]
  - Prostatic specific antigen increased [Recovered/Resolved]
  - Gallbladder disorder [Recovering/Resolving]
  - Middle insomnia [Recovered/Resolved]
  - Weight decreased [Unknown]
